FAERS Safety Report 7523062-1 (Version None)
Quarter: 2011Q2

REPORT INFORMATION
  Report Type: 
  Country: None (occurrence: None)
  Receive Date: 20110603
  Receipt Date: 20110527
  Transmission Date: 20111010
  Serious: Yes (Other)
  Sender: FDA-Public Use
  Company Number: BR-PFIZER INC-2011042912

PATIENT
  Age: 32 Year
  Sex: Female
  Weight: 45 kg

DRUGS (1)
  1. NORDETTE-21 [Suspect]
     Indication: CONTRACEPTION
     Dosage: [ETHINYL ESTRADIOL 0.03MG, LEVONORGESTREL 0.15MG], ONCE DAILY
     Route: 048
     Dates: start: 20000101

REACTIONS (10)
  - MALAISE [None]
  - INCREASED APPETITE [None]
  - INAPPROPRIATE SCHEDULE OF DRUG ADMINISTRATION [None]
  - METRORRHAGIA [None]
  - FEELING ABNORMAL [None]
  - HEADACHE [None]
  - ABNORMAL WITHDRAWAL BLEEDING [None]
  - WEIGHT INCREASED [None]
  - ANXIETY [None]
  - UTERINE DISORDER [None]
